FAERS Safety Report 19697201 (Version 1)
Quarter: 2021Q3

REPORT INFORMATION
  Report Type: Spontaneous
  Country: US (occurrence: US)
  Receive Date: 20210813
  Receipt Date: 20210813
  Transmission Date: 20211014
  Serious: Yes (Hospitalization)
  Sender: FDA-Public Use
  Company Number: None

PATIENT
  Age: 80 Year
  Sex: Male
  Weight: 88 kg

DRUGS (2)
  1. IMDEVIMAB. [Suspect]
     Active Substance: IMDEVIMAB
  2. CASIRIVIMAB. [Suspect]
     Active Substance: CASIRIVIMAB
     Route: 042
     Dates: start: 20210812, end: 20210812

REACTIONS (6)
  - Pyrexia [None]
  - Cough [None]
  - Flushing [None]
  - Chills [None]
  - Infusion related reaction [None]
  - Tremor [None]

NARRATIVE: CASE EVENT DATE: 20210813
